FAERS Safety Report 10448985 (Version 1)
Quarter: 2014Q3

REPORT INFORMATION
  Report Type: Spontaneous
  Country: US (occurrence: US)
  Receive Date: 20140912
  Receipt Date: 20140912
  Transmission Date: 20150326
  Serious: Yes (Other)
  Sender: FDA-Public Use
  Company Number: US-ASTRAZENECA-2014SE66321

PATIENT
  Age: 63 Year
  Sex: Female
  Weight: 78.5 kg

DRUGS (4)
  1. REMODULIN [Suspect]
     Active Substance: TREPROSTINIL
     Indication: PULMONARY ARTERIAL HYPERTENSION
     Dosage: 1 MG/ML, 0.019 UG/KG/MIN
     Route: 041
     Dates: start: 20140315
  2. REMODULIN [Suspect]
     Active Substance: TREPROSTINIL
     Indication: PULMONARY ARTERIAL HYPERTENSION
     Dosage: 15 NG
     Route: 041
  3. REVATIO [Concomitant]
     Active Substance: SILDENAFIL CITRATE
  4. SYMBICORT [Suspect]
     Active Substance: BUDESONIDE\FORMOTEROL FUMARATE DIHYDRATE
     Route: 055
     Dates: start: 201405

REACTIONS (5)
  - Suture rupture [Unknown]
  - Dizziness [Unknown]
  - Oxygen saturation decreased [Unknown]
  - Multiple allergies [Unknown]
  - Fatigue [Unknown]

NARRATIVE: CASE EVENT DATE: 2014
